FAERS Safety Report 14868967 (Version 1)
Quarter: 2018Q2

REPORT INFORMATION
  Report Type: Spontaneous
  Country: DE (occurrence: DE)
  Receive Date: 20180509
  Receipt Date: 20180509
  Transmission Date: 20180711
  Serious: Yes (Hospitalization, Other)
  Sender: FDA-Public Use
  Company Number: PHHY2017DE203094

PATIENT
  Age: 70 Year
  Sex: Male
  Weight: 94 kg

DRUGS (5)
  1. CARBOPLATIN. [Suspect]
     Active Substance: CARBOPLATIN
     Indication: OESOPHAGEAL CARCINOMA
     Dosage: UNK
     Route: 042
  2. ALBIGLUTIDE [Suspect]
     Active Substance: ALBIGLUTIDE
     Dosage: 50 MG, QW
     Route: 058
     Dates: start: 20170810
  3. ALBIGLUTIDE [Suspect]
     Active Substance: ALBIGLUTIDE
     Dosage: 50 MG, QW
     Route: 058
     Dates: start: 20160119, end: 20170622
  4. 5-FLUOROURACIL [Suspect]
     Active Substance: FLUOROURACIL
     Indication: OESOPHAGEAL CARCINOMA
     Dosage: UNK
     Route: 042
  5. ALBIGLUTIDE [Suspect]
     Active Substance: ALBIGLUTIDE
     Indication: TYPE 2 DIABETES MELLITUS
     Dosage: 30 MG, QW
     Route: 058
     Dates: start: 20150917, end: 20160114

REACTIONS (1)
  - Oesophageal carcinoma [Not Recovered/Not Resolved]

NARRATIVE: CASE EVENT DATE: 20171221
